FAERS Safety Report 14338214 (Version 12)
Quarter: 2018Q3

REPORT INFORMATION
  Report Type: Spontaneous
  Country: FR (occurrence: FR)
  Receive Date: 20171229
  Receipt Date: 20180812
  Transmission Date: 20181010
  Serious: Yes (Hospitalization, Other)
  Sender: FDA-Public Use
  Company Number: FR-TEVA-2017-FR-841886

PATIENT
  Age: 75 Year
  Sex: Male
  Weight: 88 kg

DRUGS (24)
  1. NEFOPAM HYDROCHLORIDE [Suspect]
     Active Substance: NEFOPAM HYDROCHLORIDE
     Indication: PAIN
     Dosage: 3 DOSAGE FORMS DAILY;
     Route: 048
  2. COLCHICINE OPOCALCIUM [Suspect]
     Active Substance: COLCHICINE
     Route: 048
     Dates: start: 20170914, end: 20170921
  3. VALIUM [Suspect]
     Active Substance: DIAZEPAM
     Indication: DEPRESSIVE SYMPTOM
     Dosage: 3 DOSAGE FORMS DAILY; 3 DF, 1X/DAY
     Route: 048
     Dates: start: 20170101, end: 20170927
  4. METFORMIN [Suspect]
     Active Substance: METFORMIN HYDROCHLORIDE
     Route: 048
     Dates: start: 20170824, end: 20171025
  5. ALPRAZOLAM. [Suspect]
     Active Substance: ALPRAZOLAM
     Indication: DEPRESSIVE SYMPTOM
     Dosage: .75 MILLIGRAM DAILY; 0.25 MG, 3X/DAY
     Route: 048
     Dates: start: 20170928
  6. AMLODIPINE [Suspect]
     Active Substance: AMLODIPINE BESYLATE
     Indication: HYPERTENSION
     Dosage: 10 MILLIGRAM DAILY;
     Route: 048
     Dates: start: 20170825, end: 20170927
  7. IRBESARTAN. [Suspect]
     Active Substance: IRBESARTAN
     Indication: HYPERTENSION
     Dosage: 300 MILLIGRAM DAILY; 300MG, 1X/DAY
     Route: 048
     Dates: start: 20150101, end: 20171006
  8. TAVANIC [Suspect]
     Active Substance: LEVOFLOXACIN
     Route: 048
     Dates: start: 20170905, end: 20170919
  9. TERBUTALINE SULPHATE [Suspect]
     Active Substance: TERBUTALINE SULFATE
     Indication: LUNG DISORDER
     Dosage: 1 DOSAGE FORMS DAILY; 1 DF, UNK
     Route: 055
     Dates: start: 20170914, end: 20170921
  10. METFORMIN [Suspect]
     Active Substance: METFORMIN HYDROCHLORIDE
     Indication: DIABETES MELLITUS
     Dosage: 1000 MILLIGRAM DAILY; 1000 MG, 1X/DAY
     Route: 048
     Dates: start: 20170824, end: 20171025
  11. MIRTAZAPINE. [Suspect]
     Active Substance: MIRTAZAPINE
     Indication: DEPRESSIVE SYMPTOM
     Dosage: 15 MILLIGRAM DAILY;
     Route: 048
     Dates: start: 20170910
  12. XARELTO [Suspect]
     Active Substance: RIVAROXABAN
     Indication: ATRIAL FIBRILLATION
     Dosage: 20 MILLIGRAM DAILY;
     Route: 048
     Dates: start: 20170824, end: 20171025
  13. XARELTO [Suspect]
     Active Substance: RIVAROXABAN
     Route: 048
     Dates: start: 20170824, end: 20171025
  14. FUROSEMIDE. [Suspect]
     Active Substance: FUROSEMIDE
     Dosage: 2 UNK, QD
     Route: 048
  15. DIFFU K [Suspect]
     Active Substance: POTASSIUM CHLORIDE
     Indication: HYPOKALAEMIA
     Dosage: 6 DOSAGE FORMS DAILY; 3 DF (2?1?0), 2X/DAY
     Route: 048
     Dates: start: 20170824, end: 20171003
  16. SEROPLEX [Suspect]
     Active Substance: ESCITALOPRAM OXALATE
     Indication: DEPRESSIVE SYMPTOM
     Dosage: 1 DOSAGE FORMS DAILY; 1DF, 1X/DAY
     Route: 048
     Dates: start: 20170101, end: 20170910
  17. TAVANIC [Suspect]
     Active Substance: LEVOFLOXACIN
     Indication: LUNG DISORDER
     Dosage: 500 MILLIGRAM DAILY; 250 MG, 2X/DAY
     Route: 048
     Dates: start: 20170905, end: 20170919
  18. DIAZEPAM. [Suspect]
     Active Substance: DIAZEPAM
     Indication: DEPRESSIVE SYMPTOM
     Dosage: 30 MILLIGRAM DAILY;
     Route: 048
     Dates: start: 20170101, end: 20170927
  19. PANTOPRAZOLE [Suspect]
     Active Substance: PANTOPRAZOLE
     Indication: GASTROOESOPHAGEAL REFLUX DISEASE
     Dosage: 20 MILLIGRAM DAILY;
     Route: 048
     Dates: start: 20150101, end: 20171025
  20. FUROSEMIDE. [Suspect]
     Active Substance: FUROSEMIDE
     Indication: HYPERTENSION
     Dosage: 60 MILLIGRAM DAILY; 30 MG (2?1?0), 2X/DAY
     Route: 048
     Dates: start: 20170825, end: 20171003
  21. DAFALGAN [Suspect]
     Active Substance: ACETAMINOPHEN
     Indication: PAIN
     Dosage: 3000 MILLIGRAM DAILY; 1000 MG, 3X/DAY
     Route: 048
     Dates: start: 20171009
  22. BISOPROLOL FUMARATE. [Suspect]
     Active Substance: BISOPROLOL FUMARATE
     Indication: HYPERTENSION
     Dosage: 1.25 MILLIGRAM DAILY; 1.25 MG, 1X/DAY
     Route: 048
     Dates: start: 20171006
  23. COLCHICINE OPOCALCIUM [Suspect]
     Active Substance: COLCHICINE
     Indication: GOUT
     Dosage: 1 DOSAGE FORMS DAILY; 1DF, 1X/DAY
     Route: 048
     Dates: start: 20170914, end: 20170921
  24. DAFALGAN [Suspect]
     Active Substance: ACETAMINOPHEN
     Route: 048
     Dates: start: 20171009

REACTIONS (1)
  - Agranulocytosis [Recovered/Resolved]

NARRATIVE: CASE EVENT DATE: 20171024
